FAERS Safety Report 6198707-1 (Version None)
Quarter: 2009Q2

REPORT INFORMATION
  Report Type: 
  Country: None (occurrence: None)
  Receive Date: 20090521
  Receipt Date: 20090514
  Transmission Date: 20091009
  Serious: Yes (Hospitalization)
  Sender: FDA-Public Use
  Company Number: PHHO2009NL04963

PATIENT
  Sex: Male

DRUGS (3)
  1. ZOLEDRONIC ACID [Suspect]
     Dosage: 4 MG
     Route: 042
     Dates: start: 20051209, end: 20081017
  2. CALCICHEW [Concomitant]
     Dosage: UNK
  3. VITAMIN D [Concomitant]

REACTIONS (13)
  - ABSCESS DRAINAGE [None]
  - ABSCESS JAW [None]
  - BONE DISORDER [None]
  - ERYTHEMA [None]
  - FRACTURE TREATMENT [None]
  - JAW FRACTURE [None]
  - JAW OPERATION [None]
  - OSTEOMYELITIS [None]
  - OSTEONECROSIS [None]
  - PAIN [None]
  - SOFT TISSUE INFECTION [None]
  - STREPTOCOCCAL BACTERAEMIA [None]
  - SWELLING [None]
